FAERS Safety Report 20061481 (Version 1)
Quarter: 2021Q4

REPORT INFORMATION
  Report Type: Other
  Country: US (occurrence: None)
  Receive Date: 20211112
  Receipt Date: 20211112
  Transmission Date: 20220304
  Serious: Yes (Life-Threatening, Hospitalization, Other)
  Sender: FDA-Public Use
  Company Number: US-ROCHE-2952350

PATIENT
  Sex: Male

DRUGS (2)
  1. OCREVUS [Suspect]
     Active Substance: OCRELIZUMAB
     Indication: Multiple sclerosis
     Route: 065
  2. MODERNA COVID-19 VACCINE [Concomitant]
     Active Substance: CX-024414
     Dosage: UNKNOWN
     Dates: start: 20210401

REACTIONS (2)
  - COVID-19 [Recovering/Resolving]
  - Pulmonary thrombosis [Unknown]

NARRATIVE: CASE EVENT DATE: 20210404
